FAERS Safety Report 6209314-6 (Version None)
Quarter: 2009Q2

REPORT INFORMATION
  Report Type: 
  Country: None (occurrence: None)
  Receive Date: 20090529
  Receipt Date: 20090518
  Transmission Date: 20091009
  Serious: Yes (Other)
  Sender: FDA-Public Use
  Company Number: PL-JNJCH-2009014692

PATIENT
  Sex: Female
  Weight: 75 kg

DRUGS (3)
  1. CETIRIZINE HYDROCHLORIDE [Suspect]
     Indication: URTICARIA
     Dosage: TEXT:10 MG
     Route: 048
     Dates: start: 20090416, end: 20090418
  2. PROMETHAZINE HCL [Suspect]
     Indication: DRUG USE FOR UNKNOWN INDICATION
     Dosage: TEXT:10 MG
     Route: 048
     Dates: start: 20090416, end: 20090418
  3. LORATADINE [Suspect]
     Indication: URTICARIA
     Dosage: TEXT:10 MG
     Route: 048
     Dates: start: 20090416, end: 20090418

REACTIONS (3)
  - BALANCE DISORDER [None]
  - SOMNOLENCE [None]
  - VISION BLURRED [None]
